FAERS Safety Report 6116210-1 (Version None)
Quarter: 2009Q1

REPORT INFORMATION
  Report Type: 
  Country: None (occurrence: None)
  Receive Date: 20090314
  Receipt Date: 20081201
  Transmission Date: 20090719
  Serious: No
  Sender: FDA-Public Use
  Company Number: US-ABBOTT-08P-163-0490780-00

PATIENT
  Sex: Female
  Weight: 90.8 kg

DRUGS (9)
  1. HUMIRA [Suspect]
     Indication: ANKYLOSING SPONDYLITIS
     Route: 058
     Dates: start: 20071101, end: 20080701
  2. METHADONE HCL [Concomitant]
     Indication: PAIN
     Dosage: 10 MG BID AND 20 MG AT BEDTIME
     Route: 048
  3. VENLAFAXINE HCL [Concomitant]
     Indication: DEPRESSION
     Route: 048
  4. BUPROPION HCL [Concomitant]
     Indication: DEPRESSION
     Route: 048
  5. LEVOTHYROXINE SODIUM [Concomitant]
     Indication: HYPOTHYROIDISM
     Route: 048
  6. LIDOCAINE [Concomitant]
     Indication: PAIN
     Route: 061
  7. IRON [Concomitant]
     Indication: BLOOD IRON DECREASED
     Route: 048
  8. DYAZIDE [Concomitant]
     Indication: HYPERTENSION
     Route: 048
  9. CONJUGATED ESTROGENS [Concomitant]
     Indication: DRUG USE FOR UNKNOWN INDICATION
     Route: 048

REACTIONS (1)
  - DRUG INEFFECTIVE [None]
